FAERS Safety Report 18015821 (Version 1)
Quarter: 2020Q3

REPORT INFORMATION
  Report Type: Report from Study
  Country: US (occurrence: US)
  Receive Date: 20200713
  Receipt Date: 20200713
  Transmission Date: 20201103
  Serious: Yes (Other)
  Sender: FDA-Public Use
  Company Number: US-JNJFOC-20200702921

PATIENT
  Sex: Male

DRUGS (6)
  1. SPRAVATO [Suspect]
     Active Substance: ESKETAMINE
     Dates: start: 20200120, end: 20200120
  2. SPRAVATO [Suspect]
     Active Substance: ESKETAMINE
     Dates: end: 20200325
  3. SPRAVATO [Suspect]
     Active Substance: ESKETAMINE
     Indication: DEPRESSION
  4. SPRAVATO [Suspect]
     Active Substance: ESKETAMINE
     Dates: start: 20200114, end: 20200114
  5. SPRAVATO [Suspect]
     Active Substance: ESKETAMINE
     Dates: start: 20200116, end: 20200116
  6. SPRAVATO [Suspect]
     Active Substance: ESKETAMINE
     Dates: start: 20200629, end: 20200629

REACTIONS (2)
  - Chronic obstructive pulmonary disease [Unknown]
  - General physical condition abnormal [Unknown]
